FAERS Safety Report 7462976-8 (Version None)
Quarter: 2011Q2

REPORT INFORMATION
  Report Type: 
  Country: None (occurrence: None)
  Receive Date: 20110506
  Receipt Date: 20110502
  Transmission Date: 20111010
  Serious: Yes (Hospitalization)
  Sender: FDA-Public Use
  Company Number: PHHY2011US37752

PATIENT
  Age: 7 Year
  Sex: Male

DRUGS (2)
  1. DEXAMETHASONE [Suspect]
     Dosage: UNK UKN, UNK
  2. HYDROCORTISONE [Suspect]
     Dosage: 0.5 MG, BID

REACTIONS (5)
  - CONVULSION [None]
  - HYPERTENSION [None]
  - NERVOUS SYSTEM DISORDER [None]
  - POSTERIOR REVERSIBLE ENCEPHALOPATHY SYNDROME [None]
  - HYDROCEPHALUS [None]
